FAERS Safety Report 5686485-1 (Version None)
Quarter: 2008Q1

REPORT INFORMATION
  Report Type: 
  Country: None (occurrence: None)
  Receive Date: 20080328
  Receipt Date: 20070828
  Transmission Date: 20080703
  Serious: Yes (Other)
  Sender: FDA-Public Use
  Company Number: US-BAYER-US-2007-025841

PATIENT
  Age: 22 Year
  Sex: Female
  Weight: 64 kg

DRUGS (1)
  1. MIRENA [Suspect]
     Indication: CONTRACEPTION
     Route: 015
     Dates: start: 20070401, end: 20070821

REACTIONS (3)
  - COMPLICATION OF DEVICE REMOVAL [None]
  - INTRA-UTERINE DEATH [None]
  - PREGNANCY WITH CONTRACEPTIVE DEVICE [None]
